FAERS Safety Report 5409306-0 (Version None)
Quarter: 2007Q3

REPORT INFORMATION
  Report Type: 
  Country: None (occurrence: None)
  Receive Date: 20070809
  Receipt Date: 20070731
  Transmission Date: 20080115
  Serious: Yes (Hospitalization)
  Sender: FDA-Public Use
  Company Number: PHHO2007JP12852

PATIENT
  Age: 75 Year
  Sex: Male

DRUGS (9)
  1. DIOVAN [Suspect]
     Indication: HYPERTENSION
     Dosage: 80 MG, QD
     Route: 048
     Dates: start: 20030305, end: 20070402
  2. HARNAL [Concomitant]
  3. JUVELA [Concomitant]
  4. METHYCOBAL [Concomitant]
  5. SUNRYTHM [Concomitant]
  6. ASPIRIN [Concomitant]
  7. ADALAT [Concomitant]
  8. NORVASC [Concomitant]
  9. VASOLAN [Concomitant]

REACTIONS (2)
  - CEREBRAL INFARCTION [None]
  - HEMIPLEGIA [None]
